FAERS Safety Report 5086213-7 (Version None)
Quarter: 2006Q3

REPORT INFORMATION
  Report Type: 
  Country: None (occurrence: None)
  Receive Date: 20060818
  Receipt Date: 20060809
  Transmission Date: 20061208
  Serious: Yes (Death)
  Sender: FDA-Public Use
  Company Number: TAP2006Q01381

PATIENT
  Age: 75 Year
  Sex: Male

DRUGS (4)
  1. LUPRON DEPOT [Suspect]
     Indication: PROSTATE CANCER
     Dosage: 7.5 MG, 1 IN 1 M, INTRAMUSCULAR
     Route: 030
     Dates: start: 20051022
  2. WARFARIN SODIUM [Concomitant]
  3. ATENOLOL [Concomitant]
  4. ALTACE [Concomitant]

REACTIONS (1)
  - DEATH [None]
